FAERS Safety Report 8697740 (Version 2)
Quarter: 2012Q4

REPORT INFORMATION
  Report Type: 
  Country: US (occurrence: US)
  Receive Date: 20120801
  Receipt Date: 20120828
  Transmission Date: 20130627
  Serious: No
  Sender: FDA-Public Use
  Company Number: US-ASTRAZENECA-2012SE52468

PATIENT
  Age: 50 Year
  Sex: Female

DRUGS (7)
  1. SEROQUEL XR [Suspect]
     Route: 048
  2. SEROQUEL XR [Suspect]
     Route: 048
  3. SEROQUEL XR [Suspect]
     Route: 048
  4. GEODON [Suspect]
     Dosage: 2/20 mg. QHS
     Route: 065
  5. SYMBYAX [Suspect]
     Dosage: 3/25 mg , two at night
     Route: 065
  6. LAMICTAL [Suspect]
     Route: 065
  7. CLONAZEPAM [Concomitant]

REACTIONS (7)
  - Insomnia [Unknown]
  - Pressure of speech [Unknown]
  - Mania [Unknown]
  - Genital rash [Unknown]
  - Somnolence [Unknown]
  - Fatigue [Unknown]
  - Drug dose omission [Unknown]
